FAERS Safety Report 7706622-4 (Version None)
Quarter: 2011Q3

REPORT INFORMATION
  Report Type: 
  Country: None (occurrence: None)
  Receive Date: 20110824
  Receipt Date: 20110805
  Transmission Date: 20111222
  Serious: Yes (Hospitalization)
  Sender: FDA-Public Use
  Company Number: JP-UCBSA-026182

PATIENT
  Sex: Female
  Weight: 74.5 kg

DRUGS (7)
  1. PHENOBARBITAL TAB [Concomitant]
     Route: 048
     Dates: start: 20101129, end: 20110224
  2. FOLIC ACID [Concomitant]
     Route: 048
     Dates: start: 20110602, end: 20110713
  3. KEPPRA [Suspect]
     Indication: EPILEPSY
     Route: 048
     Dates: start: 20110113, end: 20110126
  4. KEPPRA [Suspect]
     Route: 048
     Dates: start: 20110617, end: 20110706
  5. KEPPRA [Suspect]
     Route: 048
     Dates: start: 20110127, end: 20110616
  6. FOLIC ACID [Concomitant]
     Route: 048
     Dates: start: 20101129, end: 20110224
  7. KEPPRA [Suspect]
     Route: 048
     Dates: start: 20110707

REACTIONS (3)
  - MATERNAL EXPOSURE DURING PREGNANCY [None]
  - BREAST FEEDING [None]
  - CAESAREAN SECTION [None]
